FAERS Safety Report 11538397 (Version 4)
Quarter: 2015Q4

REPORT INFORMATION
  Report Type: Report from Study
  Country: DE (occurrence: DE)
  Receive Date: 20150922
  Receipt Date: 20151005
  Transmission Date: 20160304
  Serious: Yes (Death, Hospitalization)
  Sender: FDA-Public Use
  Company Number: DE-ABBVIE-15P-062-1466384-00

PATIENT
  Age: 68 Year
  Sex: Female

DRUGS (6)
  1. MORPHINE [Concomitant]
     Active Substance: MORPHINE
     Indication: PALLIATIVE CARE
     Dates: start: 20150915, end: 20150917
  2. SEROQUEL [Concomitant]
     Active Substance: QUETIAPINE FUMARATE
     Indication: PRODUCT USED FOR UNKNOWN INDICATION
     Dates: start: 20150909, end: 20150913
  3. DUODOPA [Suspect]
     Active Substance: CARBIDOPA\LEVODOPA
     Indication: PARKINSON^S DISEASE
     Dosage: MD 9ML, CRD 3.4ML/H, CRN 3.4ML/H, ED 3ML
     Route: 050
     Dates: start: 20131204
  4. EXELON [Concomitant]
     Active Substance: RIVASTIGMINE TARTRATE
     Indication: PRODUCT USED FOR UNKNOWN INDICATION
     Dates: start: 20150917
  5. TASMAR [Concomitant]
     Active Substance: TOLCAPONE
     Indication: PRODUCT USED FOR UNKNOWN INDICATION
     Dates: start: 20150917
  6. THYROXINE [Concomitant]
     Active Substance: LEVOTHYROXINE
     Indication: PRODUCT USED FOR UNKNOWN INDICATION
     Dates: start: 20150917

REACTIONS (9)
  - Epilepsy [Fatal]
  - Epilepsy [Not Recovered/Not Resolved]
  - Osteoporosis [Unknown]
  - Cachexia [Fatal]
  - Infection [Fatal]
  - Dementia with Lewy bodies [Unknown]
  - Blood electrolytes abnormal [Fatal]
  - Urinary tract infection [Unknown]
  - Depressed level of consciousness [Fatal]

NARRATIVE: CASE EVENT DATE: 2015
